FAERS Safety Report 6695894-3 (Version None)
Quarter: 2010Q2

REPORT INFORMATION
  Report Type: 
  Country: None (occurrence: None)
  Receive Date: 20100426
  Receipt Date: 20090716
  Transmission Date: 20101027
  Serious: No
  Sender: FDA-Public Use
  Company Number: A0797333A

PATIENT
  Sex: Female

DRUGS (6)
  1. ZOFRAN [Suspect]
     Indication: PROPHYLAXIS OF NAUSEA AND VOMITING
     Dosage: 4MG SIX TIMES PER DAY
     Route: 048
     Dates: start: 20080801
  2. VICODIN [Suspect]
     Dosage: 250MG VARIABLE DOSE
     Route: 048
     Dates: start: 20080801
  3. LISINOPRIL [Concomitant]
  4. ASPIRIN [Concomitant]
  5. VICODIN [Concomitant]
  6. DIAZEPAM [Concomitant]

REACTIONS (2)
  - DRUG INEFFECTIVE [None]
  - NAUSEA [None]
